FAERS Safety Report 10472867 (Version 3)
Quarter: 2014Q4

REPORT INFORMATION
  Report Type: Spontaneous
  Country: ZA (occurrence: ZA)
  Receive Date: 20140924
  Receipt Date: 20141006
  Transmission Date: 20150528
  Serious: Yes (Other)
  Sender: FDA-Public Use
  Company Number: ZA-SA-2014SA130362

PATIENT
  Age: 51 Year
  Sex: Male

DRUGS (2)
  1. THYROGEN [Suspect]
     Active Substance: THYROTROPIN ALFA
     Route: 065
     Dates: start: 20140819, end: 20140820
  2. IODINE (131 I) [Suspect]
     Active Substance: SODIUM IODIDE I-131
     Route: 065
     Dates: start: 20140821

REACTIONS (1)
  - Radioisotope scan abnormal [Unknown]

NARRATIVE: CASE EVENT DATE: 20140901
